FAERS Safety Report 4297551-X (Version None)
Quarter: 2004Q1

REPORT INFORMATION
  Report Type: 
  Country: None (occurrence: None)
  Receive Date: 20040213
  Receipt Date: 20040202
  Transmission Date: 20041129
  Serious: Yes (Hospitalization, Other)
  Sender: FDA-Public Use
  Company Number: NSADSS2003022425

PATIENT
  Age: 57 Year
  Sex: Male
  Weight: 102.0593 kg

DRUGS (4)
  1. REMICADE [Suspect]
     Indication: RHEUMATOID ARTHRITIS
     Dosage: 300 MG, 1 IN 1 DAY, INTRAVENOUS DRIP
     Route: 041
     Dates: start: 20030414, end: 20030414
  2. BUSPAR [Concomitant]
  3. AZULFIDIEN (SULFASALAZINE) [Concomitant]
  4. FELDENE [Concomitant]

REACTIONS (10)
  - ACIDOSIS [None]
  - BLOOD PRESSURE DECREASED [None]
  - CONVULSION [None]
  - DECREASED APPETITE [None]
  - ENCEPHALITIS VIRAL [None]
  - HYPERTENSION [None]
  - MENINGITIS ASEPTIC [None]
  - PNEUMONIA ASPIRATION [None]
  - STATUS EPILEPTICUS [None]
  - TACHYCARDIA [None]
